FAERS Safety Report 8345589-5 (Version None)
Quarter: 2012Q2

REPORT INFORMATION
  Report Type: 
  Country: None (occurrence: None)
  Receive Date: 20120508
  Receipt Date: 20120430
  Transmission Date: 20120825
  Serious: Yes (Other)
  Sender: FDA-Public Use
  Company Number: CA-ROCHE-1029945

PATIENT
  Sex: Female

DRUGS (7)
  1. VENTOLIN [Concomitant]
  2. PREDNISONE TAB [Concomitant]
  3. XOLAIR [Suspect]
     Route: 058
     Dates: start: 20100609
  4. XOLAIR [Suspect]
     Indication: ASTHMA
     Route: 058
     Dates: start: 20100531
  5. FLOVENT [Concomitant]
  6. ADVAIR DISKUS 100/50 [Concomitant]
  7. SINGULAIR [Concomitant]

REACTIONS (10)
  - GLUCOSE TOLERANCE IMPAIRED [None]
  - GASTROENTERITIS VIRAL [None]
  - SNEEZING [None]
  - BURSITIS [None]
  - NASOPHARYNGITIS [None]
  - LACRIMATION INCREASED [None]
  - ARTHRALGIA [None]
  - BLOOD PRESSURE INCREASED [None]
  - HYPERSENSITIVITY [None]
  - LOWER RESPIRATORY TRACT INFECTION [None]
